FAERS Safety Report 14714668 (Version 1)
Quarter: 2018Q2

REPORT INFORMATION
  Report Type: Spontaneous
  Country: FR (occurrence: FR)
  Receive Date: 20180404
  Receipt Date: 20180404
  Transmission Date: 20180711
  Serious: Yes (Other)
  Sender: FDA-Public Use
  Company Number: FR-BAYER-2018-061901

PATIENT
  Age: 76 Year
  Sex: Male

DRUGS (1)
  1. STIVARGA [Suspect]
     Active Substance: REGORAFENIB
     Dosage: 160 MG, QD
     Dates: start: 201404, end: 201802

REACTIONS (5)
  - Metastases to lung [None]
  - Diarrhoea [None]
  - Fatigue [None]
  - Skin disorder [None]
  - Decreased appetite [None]

NARRATIVE: CASE EVENT DATE: 201802
